FAERS Safety Report 8772934 (Version 3)
Quarter: 2012Q4

REPORT INFORMATION
  Report Type: 
  Country: US (occurrence: US)
  Receive Date: 20120907
  Receipt Date: 20121219
  Transmission Date: 20130627
  Serious: Yes (Hospitalization, Disabling)
  Sender: FDA-Public Use
  Company Number: US-BAYER-2012-092283

PATIENT
  Age: 38 Year
  Sex: Female
  Weight: 62.59 kg

DRUGS (3)
  1. YASMIN [Suspect]
     Indication: PREMENSTRUAL SYNDROME
     Dosage: UNK
     Route: 048
     Dates: start: 200312, end: 20040515
  2. AVALIDE [Concomitant]
     Dosage: 300-12.5
  3. PEPCID [Concomitant]
     Indication: DYSPEPSIA

REACTIONS (7)
  - Pulmonary embolism [Recovered/Resolved]
  - Injury [Recovered/Resolved]
  - Pain [Recovered/Resolved]
  - Deformity [None]
  - Anxiety [None]
  - Anhedonia [None]
  - Off label use [None]
